FAERS Safety Report 19399954 (Version 2)
Quarter: 2021Q2

REPORT INFORMATION
  Report Type: Spontaneous
  Country: US (occurrence: US)
  Receive Date: 20210610
  Receipt Date: 20210611
  Transmission Date: 20210717
  Serious: Yes (Other)
  Sender: FDA-Public Use
  Company Number: US-CELGENEUS-USA-20210601901

PATIENT
  Sex: Female
  Weight: 80.81 kg

DRUGS (2)
  1. REVLIMID [Suspect]
     Active Substance: LENALIDOMIDE
     Indication: MYELODYSPLASTIC SYNDROME
     Dosage: 10 MILLIGRAMS
     Route: 048
     Dates: start: 202105
  2. REVLIMID [Suspect]
     Active Substance: LENALIDOMIDE
     Dosage: DOSE REDUCED
     Route: 048
     Dates: start: 2021

REACTIONS (8)
  - Dry mouth [Unknown]
  - Balance disorder [Unknown]
  - Sleep disorder [Unknown]
  - Constipation [Unknown]
  - Haemorrhage [Unknown]
  - Asthenia [Unknown]
  - Pollakiuria [Unknown]
  - Arthralgia [Unknown]
